FAERS Safety Report 8860743 (Version 1)
Quarter: 2012Q4

REPORT INFORMATION
  Report Type: 
  Country: DE (occurrence: DE)
  Receive Date: 20121025
  Receipt Date: 20121025
  Transmission Date: 20130627
  Serious: Yes (Other)
  Sender: FDA-Public Use
  Company Number: GXKR2012DE003301

PATIENT

DRUGS (2)
  1. ACETYLSALICYLIC ACID [Suspect]
     Indication: HEADACHE
     Route: 048
  2. ASPIRIN ^BAYER^ [Suspect]
     Indication: HEADACHE
     Route: 048

REACTIONS (1)
  - Eye haemorrhage [Recovered/Resolved]
